FAERS Safety Report 5952172-5 (Version None)
Quarter: 2008Q4

REPORT INFORMATION
  Report Type: 
  Country: None (occurrence: None)
  Receive Date: 20081113
  Receipt Date: 20080806
  Transmission Date: 20090506
  Serious: No
  Sender: FDA-Public Use
  Company Number: A0741384A

PATIENT
  Age: 44 Year
  Sex: Female

DRUGS (2)
  1. COREG [Suspect]
     Indication: MITRAL VALVE PROLAPSE
     Dosage: 6.25MG PER DAY
     Route: 048
     Dates: start: 20050101
  2. COZAAR [Concomitant]

REACTIONS (2)
  - FATIGUE [None]
  - HYPOTENSION [None]
